FAERS Safety Report 8969416 (Version 1)
Quarter: 2012Q4

REPORT INFORMATION
  Report Type: 
  Country: GB (occurrence: GB)
  Receive Date: 20121217
  Receipt Date: 20121217
  Transmission Date: 20130627
  Serious: Yes (Disabling, Other)
  Sender: FDA-Public Use
  Company Number: PHHY2012GB114884

PATIENT
  Age: 49 Year
  Sex: Female
  Weight: 92.7 kg

DRUGS (4)
  1. CIPROFLOXACIN [Suspect]
     Indication: PYELONEPHRITIS ACUTE
     Dosage: 750 mg, BID
     Route: 048
     Dates: start: 20120421, end: 20120504
  2. TRANEXAMIC ACID [Concomitant]
  3. IBUPROFEN [Concomitant]
  4. TEMAZEPAM [Concomitant]

REACTIONS (6)
  - Mental impairment [Not Recovered/Not Resolved]
  - Food intolerance [Not Recovered/Not Resolved]
  - Alopecia [Not Recovered/Not Resolved]
  - Neuropathy peripheral [Not Recovered/Not Resolved]
  - Insomnia [Not Recovered/Not Resolved]
  - Tendonitis [Not Recovered/Not Resolved]
